FAERS Safety Report 16095927 (Version 3)
Quarter: 2019Q3

REPORT INFORMATION
  Report Type: Spontaneous
  Country: US (occurrence: US)
  Receive Date: 20190320
  Receipt Date: 20190717
  Transmission Date: 20191004
  Serious: No
  Sender: FDA-Public Use
  Company Number: US-SA-2019SA070528

PATIENT
  Age: 65 Year
  Sex: Female

DRUGS (3)
  1. PRALUENT [Suspect]
     Active Substance: ALIROCUMAB
     Indication: TYPE IIA HYPERLIPIDAEMIA
     Dosage: 75 MG, QOW
     Route: 058
     Dates: start: 201812
  2. ALPRAZOLAM. [Suspect]
     Active Substance: ALPRAZOLAM
     Dosage: UNK
  3. PRALUENT [Suspect]
     Active Substance: ALIROCUMAB
     Indication: HYPERLIPIDAEMIA
     Dosage: 75 MG, QOW
     Route: 058
     Dates: start: 20190525

REACTIONS (12)
  - Incorrect dose administered [Unknown]
  - Tinnitus [Unknown]
  - Muscle spasms [Unknown]
  - Injection site urticaria [Unknown]
  - Injection site haemorrhage [Unknown]
  - Chest pain [Unknown]
  - Nervousness [Unknown]
  - Device use issue [Unknown]
  - Nasopharyngitis [Unknown]
  - Otorrhoea [Recovering/Resolving]
  - Tremor [Unknown]
  - Pyrexia [Recovered/Resolved]

NARRATIVE: CASE EVENT DATE: 201902
